FAERS Safety Report 15359575 (Version 12)
Quarter: 2019Q3

REPORT INFORMATION
  Report Type: Spontaneous
  Country: CA (occurrence: CA)
  Receive Date: 20180907
  Receipt Date: 20190916
  Transmission Date: 20191004
  Serious: Yes (Hospitalization)
  Sender: FDA-Public Use
  Company Number: CA-CELLTRION INC.-2018CA020892

PATIENT

DRUGS (23)
  1. PREDNISONE. [Concomitant]
     Active Substance: PREDNISONE
     Dosage: 30 MG, DAILY  TAPERING DOWN
     Route: 048
  2. INFLECTRA [Suspect]
     Active Substance: INFLIXIMAB-DYYB
     Dosage: 5 MG/KG, EVERY 0, 2, 6 WEEKS, THEN EVERY 8 WEEKS
     Route: 042
     Dates: start: 20181019
  3. INFLECTRA [Suspect]
     Active Substance: INFLIXIMAB-DYYB
     Dosage: 10 MG, EVERY 8 WEEKS
     Route: 042
     Dates: start: 20190715
  4. PENTASA [Concomitant]
     Active Substance: MESALAMINE
     Dosage: UNK
     Dates: start: 201601
  5. DEXILANT [Concomitant]
     Active Substance: DEXLANSOPRAZOLE
     Dosage: UNK
     Route: 065
  6. CARBOCAL [Concomitant]
     Active Substance: CALCIUM CARBONATE
     Dosage: UNK
     Route: 065
  7. INFLECTRA [Suspect]
     Active Substance: INFLIXIMAB-DYYB
     Dosage: 5 MG/KG, EVERY 0, 2, 6 WEEKS, THEN EVERY 8 WEEKS
     Route: 042
     Dates: start: 20180824
  8. PREDNISONE. [Concomitant]
     Active Substance: PREDNISONE
     Dosage: 40 MG, DAILY
     Route: 048
  9. INFLECTRA [Suspect]
     Active Substance: INFLIXIMAB-DYYB
     Indication: COLITIS ULCERATIVE
     Dosage: 5 MG/KG, WEEK 0, 2, 6 THEN MAINTENANCE EVERY 8 WEEKS
     Route: 042
     Dates: start: 20180519, end: 20190320
  10. SALBUTAMOL TEVA [Concomitant]
     Active Substance: ALBUTEROL
     Dosage: UNK
  11. SOLUCAL [Concomitant]
     Dosage: UNK
  12. APO-SULFATRIM [Concomitant]
     Active Substance: SULFAMETHOXAZOLE\TRIMETHOPRIM
     Dosage: UNK
  13. INFLECTRA [Suspect]
     Active Substance: INFLIXIMAB-DYYB
     Dosage: 10 MG, EVERY 8 WEEKS)
     Route: 042
     Dates: start: 20190725
  14. INFLECTRA [Suspect]
     Active Substance: INFLIXIMAB-DYYB
     Dosage: 10 MG, EVERY 8 WEEKS)
     Route: 042
     Dates: start: 20190906
  15. INFLECTRA [Suspect]
     Active Substance: INFLIXIMAB-DYYB
     Dosage: 5 MG/KG, EVERY 0, 2, 6 WEEKS, THEN EVERY 8 WEEKS
     Route: 042
     Dates: start: 20181214
  16. INFLECTRA [Suspect]
     Active Substance: INFLIXIMAB-DYYB
     Dosage: 10 MG/KG EVERY 8 WEEKS
     Route: 042
     Dates: start: 20190531, end: 20190531
  17. FINASTERIDE. [Concomitant]
     Active Substance: FINASTERIDE
     Dosage: UNK
     Route: 065
  18. FLOVENT [Concomitant]
     Active Substance: FLUTICASONE PROPIONATE
     Dosage: UNK
  19. INFLECTRA [Suspect]
     Active Substance: INFLIXIMAB-DYYB
     Dosage: UNK
     Route: 042
     Dates: start: 20180629
  20. INFLECTRA [Suspect]
     Active Substance: INFLIXIMAB-DYYB
     Dosage: 450 MG, (5MG/KG) Q (EVERY) 0, 2, 6 WEEKS, THEN EVERY 8 WEEKS
     Route: 042
     Dates: start: 20190320
  21. INFLECTRA [Suspect]
     Active Substance: INFLIXIMAB-DYYB
     Dosage: 10 MG, EVERY 8 WEEKS)
     Route: 042
     Dates: start: 20190808
  22. EYE DROPS [Concomitant]
     Active Substance: UNSPECIFIED INGREDIENT
     Dosage: UNK
  23. SALOFALK [Concomitant]
     Dosage: UNK

REACTIONS (13)
  - Malaise [Unknown]
  - Fatigue [Unknown]
  - Body temperature fluctuation [Unknown]
  - Condition aggravated [Not Recovered/Not Resolved]
  - Pyrexia [Recovered/Resolved]
  - Diarrhoea [Recovered/Resolved]
  - Heart rate irregular [Unknown]
  - Oesophageal mass [Unknown]
  - Blood pressure fluctuation [Unknown]
  - Inappropriate schedule of product administration [Unknown]
  - Off label use [Unknown]
  - Dysphagia [Unknown]
  - Haemorrhoidal haemorrhage [Unknown]

NARRATIVE: CASE EVENT DATE: 2018
